FAERS Safety Report 14181207 (Version 1)
Quarter: 2017Q4

REPORT INFORMATION
  Report Type: Spontaneous
  Country: DE (occurrence: DE)
  Receive Date: 20171112
  Receipt Date: 20171112
  Transmission Date: 20180321
  Serious: No
  Sender: FDA-Public Use
  Company Number: DE-BIOGEN-2017BV000402

PATIENT

DRUGS (1)
  1. ELOCTA [Suspect]
     Active Substance: EFMOROCTOCOG ALFA
     Indication: IMMUNE TOLERANCE INDUCTION
     Route: 065
     Dates: start: 20171102

REACTIONS (1)
  - Off label use [Unknown]

NARRATIVE: CASE EVENT DATE: 20171102
